FAERS Safety Report 4269647-X (Version None)
Quarter: 2004Q1

REPORT INFORMATION
  Report Type: 
  Country: None (occurrence: None)
  Receive Date: 20040112
  Receipt Date: 20031230
  Transmission Date: 20041129
  Serious: Yes (Hospitalization)
  Sender: FDA-Public Use
  Company Number: PERI00204000014

PATIENT
  Age: 88 Year
  Sex: Male

DRUGS (7)
  1. COVERSYL (PERINDOPRIL) [Suspect]
     Indication: ILL-DEFINED DISORDER
     Dosage: DAILY PO
     Route: 048
     Dates: end: 20030922
  2. CORDARONE [Suspect]
     Indication: ILL-DEFINED DISORDER
     Dosage: DAILY
     Dates: end: 20030922
  3. NOROXIN [Suspect]
     Indication: ILL-DEFINED DISORDER
     Dosage: DAILY PO
     Route: 048
     Dates: start: 20030909, end: 20030915
  4. SINTROM [Suspect]
     Indication: ILL-DEFINED DISORDER
     Dosage: DAILY
     Dates: end: 20030915
  5. BUMETANIDE [Concomitant]
  6. PRAVASTATIN SODIUM [Concomitant]
  7. AMOXICILLIN TRIHYDRATE [Concomitant]

REACTIONS (2)
  - HEPATITIS [None]
  - RENAL FAILURE [None]
